FAERS Safety Report 5597186-2 (Version None)
Quarter: 2008Q1

REPORT INFORMATION
  Report Type: 
  Country: None (occurrence: None)
  Receive Date: 20080121
  Receipt Date: 20080110
  Transmission Date: 20080703
  Serious: Yes (Death)
  Sender: FDA-Public Use
  Company Number: US-JNJFOC-20080102879

PATIENT
  Sex: Male
  Weight: 78.02 kg

DRUGS (11)
  1. FENTANYL TRANSDERMAL SYSTEM [Suspect]
     Indication: ARTHRITIS
     Route: 062
  2. PLAVIX [Concomitant]
     Route: 048
  3. DILTIAZEM HCL [Concomitant]
     Indication: HYPERTENSION
     Route: 048
  4. VYTORIN [Concomitant]
     Dosage: 10/40 MG TABLETS DAILY
     Route: 048
  5. LASIX [Concomitant]
     Route: 048
  6. OMEPRAZOLE [Concomitant]
     Indication: GASTROOESOPHAGEAL REFLUX DISEASE
     Route: 048
  7. ZYRTEC [Concomitant]
     Indication: MULTIPLE ALLERGIES
     Route: 048
  8. FLOMAX [Concomitant]
     Route: 048
  9. POTASSIUM CHLORIDE [Concomitant]
     Route: 048
  10. ASPIRIN [Concomitant]
     Indication: ANTICOAGULANT THERAPY
     Dosage: HALF A TABLET DAILY
     Route: 048
  11. GLYCOLAX [Concomitant]
     Indication: CONSTIPATION
     Route: 048

REACTIONS (1)
  - CARDIAC DISORDER [None]
